FAERS Safety Report 5103150-X (Version None)
Quarter: 2006Q3

REPORT INFORMATION
  Report Type: 
  Country: None (occurrence: None)
  Receive Date: 20060908
  Receipt Date: 20060824
  Transmission Date: 20061208
  Serious: Yes (Other)
  Sender: FDA-Public Use
  Company Number: 2006AL002520

PATIENT
  Sex: Female

DRUGS (2)
  1. TRAMADOL HCL [Suspect]
     Indication: PAIN
     Dosage: PO
     Route: 048
  2. DURAGESIC-100 [Concomitant]

REACTIONS (2)
  - DRUG DEPENDENCE [None]
  - DRUG EFFECT DECREASED [None]
